FAERS Safety Report 9342389 (Version 1)
Quarter: 2013Q2

REPORT INFORMATION
  Report Type: Spontaneous
  Country: DE (occurrence: None)
  Receive Date: 20130607
  Receipt Date: 20130607
  Transmission Date: 20140414
  Serious: Yes (Other)
  Sender: FDA-Public Use
  Company Number: AUR-APL-2013-04651

PATIENT
  Age: 13 Year
  Sex: Female

DRUGS (1)
  1. QUETIAPINE (QUETIAPINE) (QUETIAPINE) [Suspect]
     Indication: PRODUCT USED FOR UNKNOWN INDICATION

REACTIONS (4)
  - Overdose [None]
  - Coma scale abnormal [None]
  - Electrocardiogram QT prolonged [None]
  - Depressed level of consciousness [None]
